FAERS Safety Report 4284536-2 (Version None)
Quarter: 2004Q1

REPORT INFORMATION
  Report Type: 
  Country: None (occurrence: None)
  Receive Date: 20040130
  Receipt Date: 20040120
  Transmission Date: 20041129
  Serious: Yes (Death, Hospitalization)
  Sender: FDA-Public Use
  Company Number: B01200202903

PATIENT
  Age: 58 Year
  Sex: Male

DRUGS (10)
  1. CLOPIDOGREL BISULFATE [Suspect]
     Indication: ISCHAEMIC STROKE
     Dosage: 75 MG
     Route: 048
     Dates: start: 20020131, end: 20021014
  2. ASPIRIN [Suspect]
     Indication: ISCHAEMIC STROKE
     Dosage: 75 MG DAILY
     Route: 048
     Dates: start: 20020131, end: 20021014
  3. ASPIRIN [Suspect]
     Indication: TRANSIENT ISCHAEMIC ATTACK
     Dosage: 75 MG DAILY
     Route: 048
     Dates: start: 20020131, end: 20021014
  4. DIGOXIN [Concomitant]
  5. SPIRONOLACTONE [Concomitant]
  6. LISINOPRIL [Concomitant]
  7. BUMEX [Concomitant]
  8. TOPROL (METOPROLOL SUCCINATE) [Concomitant]
  9. NIASPAN [Concomitant]
  10. CLARITIN [Concomitant]

REACTIONS (10)
  - APNOEA [None]
  - ARRHYTHMIA [None]
  - ASTHENIA [None]
  - CYANOSIS [None]
  - DIARRHOEA [None]
  - MELAENA [None]
  - NAUSEA [None]
  - RENAL FAILURE ACUTE [None]
  - VENTRICULAR FIBRILLATION [None]
  - VOMITING [None]
